FAERS Safety Report 8457642-6 (Version None)
Quarter: 2012Q2

REPORT INFORMATION
  Report Type: 
  Country: None (occurrence: None)
  Receive Date: 20120622
  Receipt Date: 20120619
  Transmission Date: 20120825
  Serious: No
  Sender: FDA-Public Use
  Company Number: US-PFIZER INC-2012111514

PATIENT
  Sex: Male
  Weight: 86.168 kg

DRUGS (5)
  1. ASCORBIC ACID [Concomitant]
     Dosage: UNK
  2. LOVAZA [Concomitant]
     Dosage: 1200 MG, 1X/DAY
  3. CENTRUM A-Z [Suspect]
     Indication: VITAMIN SUPPLEMENTATION
     Dosage: UNK, 1X/DAY
     Route: 048
     Dates: start: 19790101
  4. LEVOTHYROXINE SODIUM [Suspect]
     Indication: HYPOTHYROIDISM
     Dosage: 50 UG, 1X/DAY
     Route: 048
  5. SYNTHROID [Concomitant]
     Dosage: 50 MCG - 88MCG DAILY

REACTIONS (5)
  - HYPOTENSION [None]
  - HEADACHE [None]
  - HYPERTENSION [None]
  - HEART RATE DECREASED [None]
  - HEART RATE INCREASED [None]
